FAERS Safety Report 6194111-0 (Version None)
Quarter: 2009Q2

REPORT INFORMATION
  Report Type: 
  Country: None (occurrence: None)
  Receive Date: 20090518
  Receipt Date: 20090331
  Transmission Date: 20091009
  Serious: Yes (Other)
  Sender: FDA-Public Use
  Company Number: PHHY2009JP18930

PATIENT
  Age: 80 Year
  Sex: Female

DRUGS (2)
  1. FAMVIR [Suspect]
     Dosage: 1500 MG, QD
     Route: 048
     Dates: start: 20090309, end: 20090312
  2. FAMVIR [Suspect]
     Dosage: 750 MG DAILY
     Route: 048
     Dates: start: 20090313

REACTIONS (2)
  - HYPERTENSION [None]
  - PALPITATIONS [None]
